FAERS Safety Report 10393738 (Version 2)
Quarter: 2014Q3

REPORT INFORMATION
  Report Type: Spontaneous
  Country: FR (occurrence: FR)
  Receive Date: 20140819
  Receipt Date: 20140829
  Transmission Date: 20150326
  Serious: Yes (Hospitalization)
  Sender: FDA-Public Use
  Company Number: FR-ASTRAZENECA-2014SE59630

PATIENT
  Age: 83 Year
  Sex: Female

DRUGS (10)
  1. LASILIX [Concomitant]
     Active Substance: FUROSEMIDE
     Route: 048
  2. DIPROSONE [Concomitant]
     Active Substance: BETAMETHASONE DIPROPIONATE
     Route: 061
  3. PROPYLEX [Suspect]
     Active Substance: PROPYLENE GLYCOL
     Indication: HYPERTHYROIDISM
     Route: 048
     Dates: start: 20140129, end: 20140318
  4. PREVISCAN [Concomitant]
     Active Substance: FLUINDIONE
     Route: 048
  5. AERIUS [Concomitant]
     Active Substance: DESLORATADINE
     Route: 048
  6. ATACAND [Suspect]
     Active Substance: CANDESARTAN CILEXETIL
     Indication: CARDIAC FAILURE
     Route: 048
     Dates: start: 20140228, end: 20140318
  7. LEVOTHYROX [Suspect]
     Active Substance: LEVOTHYROXINE
     Route: 048
     Dates: start: 20140312, end: 20140318
  8. BISOCE [Concomitant]
     Active Substance: BISOPROLOL
     Route: 048
  9. INEXIUM [Suspect]
     Active Substance: ESOMEPRAZOLE
     Route: 048
     Dates: start: 20140130, end: 20140318
  10. DUPHALAC [Concomitant]
     Active Substance: LACTULOSE
     Route: 048

REACTIONS (2)
  - Toxic skin eruption [Recovered/Resolved]
  - Eosinophilia [Recovered/Resolved]

NARRATIVE: CASE EVENT DATE: 20140318
